FAERS Safety Report 7240225-3 (Version None)
Quarter: 2011Q1

REPORT INFORMATION
  Report Type: 
  Country: None (occurrence: None)
  Receive Date: 20110113
  Receipt Date: 20110104
  Transmission Date: 20110831
  Serious: Yes (Hospitalization)
  Sender: FDA-Public Use
  Company Number: 2011SP000291

PATIENT
  Age: 46 Year
  Sex: Female

DRUGS (1)
  1. GRACIAL (DESOGESTREL/ETHINYLESTRADIOL /00570801/) [Suspect]
     Indication: CONTRACEPTION
     Dosage: QD;PO
     Route: 048
     Dates: start: 20000101, end: 20100101

REACTIONS (1)
  - ISCHAEMIC STROKE [None]
